FAERS Safety Report 9501448 (Version 1)
Quarter: 2013Q1

REPORT INFORMATION
  Report Type: Spontaneous
  Country: US (occurrence: None)
  Receive Date: 20130118
  Receipt Date: 20130118
  Transmission Date: 20140127
  Serious: Yes (Hospitalization)
  Sender: FDA-Public Use
  Company Number: ALK-2012-000901

PATIENT
  Sex: Female

DRUGS (2)
  1. VERELAN PM [Suspect]
     Indication: PRODUCT USED FOR UNKNOWN INDICATION
  2. DIFLUCAN [Concomitant]

REACTIONS (2)
  - Hypotension [None]
  - Drug interaction [None]
